FAERS Safety Report 5406901-X (Version None)
Quarter: 2007Q3

REPORT INFORMATION
  Report Type: 
  Country: None (occurrence: None)
  Receive Date: 20070802
  Receipt Date: 20070726
  Transmission Date: 20080115
  Serious: Yes (Death)
  Sender: FDA-Public Use
  Company Number: 2007SP009395

PATIENT
  Age: 16 Year
  Sex: Male
  Weight: 73 kg

DRUGS (2)
  1. CLARITIN [Suspect]
     Indication: MULTIPLE ALLERGIES
     Dosage: 10 MG;QD;PO
     Route: 048
     Dates: start: 20050101, end: 20050101
  2. RITALIN [Suspect]
     Indication: ATTENTION DEFICIT/HYPERACTIVITY DISORDER
     Dosage: 70 MG; ;PO
     Route: 048
     Dates: start: 19980101, end: 20050101

REACTIONS (3)
  - ELECTROCARDIOGRAM QT PROLONGED [None]
  - FALL [None]
  - VENTRICULAR FIBRILLATION [None]
